FAERS Safety Report 8338690-3 (Version None)
Quarter: 2012Q2

REPORT INFORMATION
  Report Type: 
  Country: None (occurrence: None)
  Receive Date: 20120504
  Receipt Date: 20120430
  Transmission Date: 20120825
  Serious: Yes (Hospitalization)
  Sender: FDA-Public Use
  Company Number: GB-ELI_LILLY_AND_COMPANY-GB201204009425

PATIENT
  Sex: Female

DRUGS (2)
  1. ROSUVASTATIN [Concomitant]
  2. BYETTA [Suspect]
     Dosage: UNK

REACTIONS (2)
  - HEPATIC FAILURE [None]
  - GASTROINTESTINAL DISORDER [None]
